FAERS Safety Report 15034446 (Version 1)
Quarter: 2018Q2

REPORT INFORMATION
  Report Type: Spontaneous
  Country: DE (occurrence: DE)
  Receive Date: 20180620
  Receipt Date: 20180620
  Transmission Date: 20180711
  Serious: Yes (Life-Threatening, Hospitalization, Other)
  Sender: FDA-Public Use
  Company Number: DE-AMGEN-DEUSP2018082112

PATIENT
  Age: 76 Year
  Sex: Male
  Weight: 66 kg

DRUGS (7)
  1. SYMBICORT [Concomitant]
     Active Substance: BUDESONIDE\FORMOTEROL FUMARATE DIHYDRATE
     Dosage: UNK
  2. PANTOPRAZOL [Concomitant]
     Active Substance: PANTOPRAZOLE SODIUM
  3. ENBREL [Suspect]
     Active Substance: ETANERCEPT
     Indication: RHEUMATOID ARTHRITIS
     Dosage: 50 MG, WEEKLY
     Route: 058
     Dates: start: 201110, end: 201804
  4. IVABRADINE [Concomitant]
     Active Substance: IVABRADINE
     Dosage: 5MG EVERY 12 HOURS
  5. BICANORM [Concomitant]
     Active Substance: SODIUM BICARBONATE
     Dosage: 1 DF, 1X/DAY, 1X1
  6. DECORTIN [Concomitant]
     Active Substance: PREDNISONE
  7. CALCIGEN D3 [Concomitant]

REACTIONS (1)
  - Transitional cell carcinoma [Not Recovered/Not Resolved]

NARRATIVE: CASE EVENT DATE: 201801
